FAERS Safety Report 7894465-0 (Version None)
Quarter: 2011Q4

REPORT INFORMATION
  Report Type: 
  Country: None (occurrence: None)
  Receive Date: 20111106
  Receipt Date: 20111018
  Transmission Date: 20120403
  Serious: No
  Sender: FDA-Public Use
  Company Number: US-ROXANE LABORATORIES, INC.-2011-RO-01527RO

PATIENT
  Sex: Female
  Weight: 71 kg

DRUGS (3)
  1. MEPERIDINE HCL [Suspect]
  2. MORPHINE [Suspect]
  3. CODEINE SUL TAB [Suspect]

REACTIONS (1)
  - DRUG HYPERSENSITIVITY [None]
